FAERS Safety Report 9605538 (Version 1)
Quarter: 2013Q4

REPORT INFORMATION
  Report Type: Spontaneous
  Country: US (occurrence: US)
  Receive Date: 20131008
  Receipt Date: 20131008
  Transmission Date: 20140711
  Serious: No
  Sender: FDA-Public Use
  Company Number: US-PFIZER INC-2013286004

PATIENT
  Age: 47 Year
  Sex: Male
  Weight: 92.97 kg

DRUGS (3)
  1. GEODON [Suspect]
     Indication: BIPOLAR DISORDER
     Dosage: 40 MG, 2X/DAY
     Route: 048
     Dates: start: 20131003
  2. GEODON [Suspect]
     Indication: ASTHENIA
  3. CYMBALTA [Concomitant]
     Dosage: UNK

REACTIONS (6)
  - Off label use [Unknown]
  - Restlessness [Unknown]
  - Dizziness [Unknown]
  - Confusional state [Unknown]
  - Feeling abnormal [Unknown]
  - Dyspnoea [Unknown]
